FAERS Safety Report 7823790-4 (Version None)
Quarter: 2011Q4

REPORT INFORMATION
  Report Type: 
  Country: None (occurrence: None)
  Receive Date: 20111019
  Receipt Date: 20111011
  Transmission Date: 20120403
  Serious: Yes (Death, Hospitalization, Other)
  Sender: FDA-Public Use
  Company Number: US-BAYER-201041603NA

PATIENT
  Age: 69 Year
  Sex: Male
  Weight: 113 kg

DRUGS (32)
  1. RED BLOOD CELLS [Concomitant]
     Dosage: 5 U, UNK
     Route: 042
     Dates: start: 20030509
  2. LIPITOR [Concomitant]
     Dosage: 10 MG, QD
     Route: 048
  3. HUMULIN [INSULIN HUMAN] [Concomitant]
     Dosage: UNK
     Route: 042
     Dates: start: 20030509
  4. LASIX [Concomitant]
     Dosage: 40 MG, TID
     Route: 048
  5. IOPAMIDOL [Concomitant]
     Dosage: 150 ML, UNK
     Dates: start: 20030507
  6. ALDACTONE [Concomitant]
     Dosage: UNK UNK, QD
  7. FENTANYL [Concomitant]
     Dosage: 50 MCG, UNK
     Route: 042
     Dates: start: 20030507, end: 20030507
  8. HUMULIN R [Concomitant]
     Dosage: QAM, QPM
  9. HUMULIN R [Concomitant]
     Dosage: SLIDING SCALE
     Route: 058
  10. HEPARIN [Concomitant]
     Dosage: 22000 U, UNK
     Route: 042
     Dates: start: 20030509
  11. CALCIUM CHLORIDE [Concomitant]
     Dosage: UNK
     Route: 042
     Dates: start: 20030509, end: 20030509
  12. NITROGLYCERIN [Concomitant]
     Dosage: 6.5 MG, BID
     Route: 048
  13. ZESTRIL [Concomitant]
     Dosage: 5 MG, QD
     Route: 048
  14. TRASYLOL [Suspect]
     Indication: CORONARY ARTERY BYPASS
     Dosage: UNK
     Route: 042
     Dates: start: 20030509, end: 20030509
  15. PRINIVIL [Concomitant]
     Dosage: UNK UNK, QD
  16. AMIODARONE HCL [Concomitant]
  17. ALDACTONE [POTASSIUM CANRENOATE] [Concomitant]
     Dosage: 25 MG, QD
     Route: 048
  18. TRASYLOL [Suspect]
     Indication: MITRAL VALVE REPLACEMENT
     Dosage: 1 ML, IV PUSH
     Route: 042
     Dates: start: 20030509, end: 20030509
  19. VERSED [Concomitant]
     Dosage: 2 MG, UNK
     Route: 042
     Dates: start: 20030507, end: 20030507
  20. PAVULON [Concomitant]
     Dosage: UNK
     Route: 042
     Dates: start: 20030509, end: 20030509
  21. ZEBETA [Concomitant]
     Dosage: 5MG TAB TAKE ? DAILY
     Route: 048
  22. LANOXIN [Concomitant]
     Dosage: 0.125 MG, QD
     Route: 048
  23. PHENYLEPHRINE HCL [Concomitant]
     Dosage: UNK
     Route: 042
     Dates: start: 20030509, end: 20030509
  24. TRASYLOL [Suspect]
     Dosage: 100 ML, ONCE, LOADING DOSE
     Route: 042
     Dates: start: 20030509, end: 20030509
  25. PLATELETS [Concomitant]
     Dosage: 6 U, UNK
     Route: 042
     Dates: start: 20030509, end: 20030509
  26. ACETYLSALICYLIC ACID SRT [Concomitant]
     Dosage: 81 MG, PRN
  27. HUMULIN N [Concomitant]
     Dosage: 50 UNITS AM
     Route: 058
  28. PROTAMINE SULFATE [Concomitant]
     Dosage: UNK
     Route: 042
     Dates: start: 20030509, end: 20030509
  29. LEVOPHED [Concomitant]
     Dosage: UNK
     Route: 042
     Dates: start: 20030509, end: 20030509
  30. NEURONTIN [Concomitant]
     Dosage: UNK UNK, BID
  31. HUMULIN N [Concomitant]
     Dosage: 50 UNITS PM
     Route: 058
  32. VERSED [Concomitant]
     Dosage: UNK
     Route: 042
     Dates: start: 20030509, end: 20030509

REACTIONS (11)
  - RENAL FAILURE [None]
  - STRESS [None]
  - UNEVALUABLE EVENT [None]
  - RENAL IMPAIRMENT [None]
  - DEATH [None]
  - RENAL INJURY [None]
  - FEAR [None]
  - PAIN [None]
  - MULTI-ORGAN FAILURE [None]
  - ANXIETY [None]
  - EMOTIONAL DISTRESS [None]
